FAERS Safety Report 6886612-4 (Version None)
Quarter: 2010Q3

REPORT INFORMATION
  Report Type: 
  Country: None (occurrence: None)
  Receive Date: 20100730
  Receipt Date: 20100722
  Transmission Date: 20110219
  Serious: No
  Sender: FDA-Public Use
  Company Number: US-BIOGENIDEC-2010BI025229

PATIENT
  Age: 25 Year
  Sex: Male

DRUGS (2)
  1. TYSABRI [Suspect]
     Indication: MULTIPLE SCLEROSIS
     Route: 042
     Dates: start: 20090514
  2. TIZANIDINE HCL [Concomitant]
     Indication: MUSCLE SPASMS
     Dates: start: 20050501

REACTIONS (1)
  - MUSCLE SPASTICITY [None]
